FAERS Safety Report 10004213 (Version 1)
Quarter: 2014Q1

REPORT INFORMATION
  Report Type: Spontaneous
  Country: SE (occurrence: SE)
  Receive Date: 20140312
  Receipt Date: 20140312
  Transmission Date: 20141002
  Serious: Yes (Other)
  Sender: FDA-Public Use
  Company Number: SE-ASTRAZENECA-2014SE16422

PATIENT
  Sex: Female

DRUGS (21)
  1. OMEPRAZOLE [Suspect]
     Route: 048
  2. SEROQUEL [Suspect]
     Route: 048
  3. STESOLID [Suspect]
  4. ZYPREXA [Suspect]
  5. OXASCAND [Suspect]
  6. CISORDINOL [Suspect]
  7. FLUOXETINE [Suspect]
  8. LITHIONIT [Suspect]
  9. HEMINEVRIN [Suspect]
  10. AKINETON [Suspect]
  11. THERALEN [Suspect]
  12. IMOVANE [Suspect]
  13. PROPAVAN [Suspect]
  14. SOBRIL [Suspect]
  15. ERGENYL [Suspect]
  16. INVEGA [Suspect]
  17. NOZINAN [Suspect]
  18. PARGITAN [Suspect]
  19. ATARAX [Suspect]
  20. CETIRIZINE [Suspect]
  21. TOPIRAMATE [Suspect]

REACTIONS (19)
  - Ovarian germ cell cancer stage II [Unknown]
  - Amenorrhoea [Unknown]
  - Weight increased [Unknown]
  - Tremor [Unknown]
  - Galactorrhoea [Unknown]
  - Dyspnoea [Unknown]
  - Blood prolactin increased [Unknown]
  - Palpitations [Unknown]
  - Dyskinesia [Unknown]
  - Dysuria [Unknown]
  - Swelling [Unknown]
  - Muscle spasms [Unknown]
  - Breast enlargement [Unknown]
  - Fatigue [Unknown]
  - Muscular weakness [Unknown]
  - Agitation [Unknown]
  - Aggression [Unknown]
  - Hyperhidrosis [Unknown]
  - Abdominal pain [Unknown]
